FAERS Safety Report 13458827 (Version 2)
Quarter: 2017Q2

REPORT INFORMATION
  Report Type: Report from Study
  Country: US (occurrence: BR)
  Receive Date: 20170419
  Receipt Date: 20170502
  Transmission Date: 20170830
  Serious: No
  Sender: FDA-Public Use
  Company Number: US-SUNOVION-2017SUN001641

PATIENT
  Sex: Male
  Weight: 70 kg

DRUGS (9)
  1. QUETIAPINA [Concomitant]
     Active Substance: QUETIAPINE
     Dosage: 75 MG, UNK
     Route: 048
  2. PROLOPA [Concomitant]
     Active Substance: BENSERAZIDE\LEVODOPA
     Dosage: 200/50MG UNK
     Route: 048
  3. ANCORON [Concomitant]
     Active Substance: AMIODARONE HYDROCHLORIDE
     Dosage: UNK
     Route: 048
     Dates: start: 20170102
  4. PENTOXIFILINA [Concomitant]
     Active Substance: PENTOXIFYLLINE
     Dosage: UNK
     Route: 048
  5. CITALOPRAM [Concomitant]
     Active Substance: CITALOPRAM HYDROBROMIDE
     Dosage: 10 MG, UNK
     Route: 048
  6. INDACATEROL AND GLYCOPYRROLATE [Suspect]
     Active Substance: GLYCOPYRROLATE\INDACATEROL MALEATE
     Indication: PULMONARY EMBOLISM
     Dosage: 1 DF, UNK (110/50MCG)
     Route: 055
     Dates: start: 20170322
  7. ROSUVASTATINA CALCICA [Concomitant]
     Dosage: UNK
     Route: 048
  8. ALDACTONE [Concomitant]
     Active Substance: SPIRONOLACTONE
     Dosage: UNK
     Route: 048
  9. LASIX [Concomitant]
     Active Substance: FUROSEMIDE
     Dosage: UNK
     Route: 048
     Dates: start: 201701

REACTIONS (2)
  - Dyspnoea [Recovering/Resolving]
  - Off label use [Unknown]
